FAERS Safety Report 18643300 (Version 1)
Quarter: 2020Q4

REPORT INFORMATION
  Report Type: Spontaneous
  Country: US (occurrence: US)
  Receive Date: 20201221
  Receipt Date: 20201221
  Transmission Date: 20210114
  Serious: No
  Sender: FDA-Public Use
  Company Number: None

PATIENT
  Age: 60 Year
  Sex: Female
  Weight: 54 kg

DRUGS (14)
  1. BERBERINE [Concomitant]
     Active Substance: BERBERINE
  2. QUERCETIN [Concomitant]
     Active Substance: QUERCETIN
  3. COENZYME Q10 [Concomitant]
     Active Substance: DIETARY SUPPLEMENT\UBIDECARENONE
  4. VITAMIN B [Concomitant]
     Active Substance: VITAMIN B
  5. CURCUMIN [Concomitant]
     Active Substance: CURCUMIN
  6. XIFAXAN [Suspect]
     Active Substance: RIFAXIMIN
     Indication: GASTROINTESTINAL BACTERIAL OVERGROWTH
     Route: 048
     Dates: start: 20191029, end: 20191116
  7. VITAMIN D [Concomitant]
     Active Substance: VITAMIN D NOS
  8. DIGESTIVE ENZYMES [Concomitant]
     Active Substance: UNSPECIFIED INGREDIENT
  9. PANCREATIC DIGESTIVE ENZYMES [Concomitant]
  10. SLIPPERY ELM [Concomitant]
     Active Substance: ELM
  11. TIMOLOL. [Concomitant]
     Active Substance: TIMOLOL
  12. VITAMIN A [Concomitant]
     Active Substance: VITAMIN A
  13. MARSHMALLOW ROOT [Concomitant]
  14. PSYLLIUM [Concomitant]
     Active Substance: PLANTAGO SEED

REACTIONS (6)
  - Gastrointestinal disorder [None]
  - Malnutrition [None]
  - Disease complication [None]
  - Eosinophilic colitis [None]
  - Colitis ulcerative [None]
  - Product label issue [None]

NARRATIVE: CASE EVENT DATE: 20191116
